FAERS Safety Report 5388577-3 (Version None)
Quarter: 2007Q3

REPORT INFORMATION
  Report Type: 
  Country: None (occurrence: None)
  Receive Date: 20070716
  Receipt Date: 20070705
  Transmission Date: 20080115
  Serious: Yes (Other)
  Sender: FDA-Public Use
  Company Number: FR-PFIZER INC-2007054931

PATIENT
  Age: 73 Year
  Sex: Male

DRUGS (2)
  1. TRIFLUCAN [Suspect]
     Indication: ORAL CANDIDIASIS
     Route: 048
  2. INSULIN [Concomitant]

REACTIONS (4)
  - DIABETES MELLITUS [None]
  - HYPERGLYCAEMIA [None]
  - HYPERSENSITIVITY [None]
  - SKIN EXFOLIATION [None]
